FAERS Safety Report 11680394 (Version 2)
Quarter: 2015Q4

REPORT INFORMATION
  Report Type: Spontaneous
  Country: US (occurrence: US)
  Receive Date: 20151027
  Receipt Date: 20151104
  Transmission Date: 20160304
  Serious: No
  Sender: FDA-Public Use
  Company Number: US-ELI_LILLY_AND_COMPANY-US201007005362

PATIENT
  Age: 78 Year
  Sex: Female

DRUGS (8)
  1. FORTEO [Suspect]
     Active Substance: TERIPARATIDE
     Indication: OSTEOPOROSIS
     Dosage: 20 UG, DAILY (1/D)
     Dates: start: 20100427
  2. FORTEO [Suspect]
     Active Substance: TERIPARATIDE
     Dosage: 20 UG, DAILY (1/D)
  3. FORTEO [Suspect]
     Active Substance: TERIPARATIDE
     Dosage: 20 UG, DAILY (1/D)
  4. FORTEO [Suspect]
     Active Substance: TERIPARATIDE
     Dosage: 20 UG, DAILY (1/D)
     Dates: end: 20110223
  5. FORTEO [Suspect]
     Active Substance: TERIPARATIDE
     Dosage: 20 UG, DAILY (1/D)
     Dates: start: 20101016
  6. FORTEO [Suspect]
     Active Substance: TERIPARATIDE
     Dosage: 20 UG, DAILY (1/D)
  7. FORTEO [Suspect]
     Active Substance: TERIPARATIDE
     Dosage: 20 UG, QD
  8. FORTEO [Suspect]
     Active Substance: TERIPARATIDE
     Dosage: 20 UG, DAILY (1/D)

REACTIONS (17)
  - Rash pruritic [Not Recovered/Not Resolved]
  - Joint swelling [Unknown]
  - Injection site erythema [Not Recovered/Not Resolved]
  - Decreased activity [Unknown]
  - Accidental overdose [Not Recovered/Not Resolved]
  - Amnesia [Recovering/Resolving]
  - Gait disturbance [Recovering/Resolving]
  - Nasopharyngitis [Unknown]
  - Injection site bruising [Unknown]
  - Drug dose omission [Recovered/Resolved]
  - Injection site haemorrhage [Not Recovered/Not Resolved]
  - Arthralgia [Unknown]
  - Drug dose omission [Unknown]
  - Confusional state [Recovered/Resolved]
  - Injection site pain [Not Recovered/Not Resolved]
  - Drug dose omission [Unknown]
  - Rash [Unknown]

NARRATIVE: CASE EVENT DATE: 201006
